FAERS Safety Report 23407161 (Version 1)
Quarter: 2024Q1

REPORT INFORMATION
  Report Type: Spontaneous
  Country: CN (occurrence: CN)
  Receive Date: 20240116
  Receipt Date: 20240116
  Transmission Date: 20240410
  Serious: Yes (Other)
  Sender: FDA-Public Use
  Company Number: None

PATIENT
  Age: 57 Year
  Sex: Female
  Weight: 75 kg

DRUGS (23)
  1. MANNITOL [Suspect]
     Active Substance: MANNITOL
     Indication: Diuretic therapy
     Dosage: 250 MILLILITER (ML) ONCE A DAY (DOSAGE FORM: INJECTION)
     Route: 041
     Dates: start: 20240106, end: 20240107
  2. MANNITOL [Suspect]
     Active Substance: MANNITOL
     Indication: Oedema
  3. SODIUM CHLORIDE [Suspect]
     Active Substance: SODIUM CHLORIDE
     Indication: Medication dilution
     Dosage: GIVEN AT 11:13 HOURS, 20 ML, USED TO DILUTE METHYLPREDNISOLONE SODIUM SUCCINATE 40 MG
     Route: 042
     Dates: start: 20240107
  4. OXYGEN [Suspect]
     Active Substance: OXYGEN
     Indication: Chest discomfort
     Dosage: 3L/MIN VIA NASAL CANNULA
     Dates: start: 20240107
  5. OXYGEN [Suspect]
     Active Substance: OXYGEN
     Indication: Hyperhidrosis
  6. OXYGEN [Suspect]
     Active Substance: OXYGEN
     Indication: Palpitations
  7. OXYGEN [Suspect]
     Active Substance: OXYGEN
     Indication: Blood pressure increased
  8. CALCIUM CHLORIDE\POTASSIUM CHLORIDE\SODIUM CHLORIDE [Suspect]
     Active Substance: CALCIUM CHLORIDE\POTASSIUM CHLORIDE\SODIUM CHLORIDE
     Indication: Chest discomfort
     Dosage: 500 MILLILITER (ML)
     Route: 042
     Dates: start: 20240107
  9. CALCIUM CHLORIDE\POTASSIUM CHLORIDE\SODIUM CHLORIDE [Suspect]
     Active Substance: CALCIUM CHLORIDE\POTASSIUM CHLORIDE\SODIUM CHLORIDE
     Indication: Hyperhidrosis
  10. CALCIUM CHLORIDE\POTASSIUM CHLORIDE\SODIUM CHLORIDE [Suspect]
     Active Substance: CALCIUM CHLORIDE\POTASSIUM CHLORIDE\SODIUM CHLORIDE
     Indication: Palpitations
  11. CALCIUM CHLORIDE\POTASSIUM CHLORIDE\SODIUM CHLORIDE [Suspect]
     Active Substance: CALCIUM CHLORIDE\POTASSIUM CHLORIDE\SODIUM CHLORIDE
     Indication: Blood pressure increased
  12. METHYLPREDNISOLONE SODIUM SUCCINATE [Suspect]
     Active Substance: METHYLPREDNISOLONE SODIUM SUCCINATE
     Indication: Chest discomfort
     Dosage: 40 MILLIGRAM (MG) DILUTED WITH 20 ML OF 0.9% SODIUM CHLORIDE
     Route: 042
     Dates: start: 20240107
  13. METHYLPREDNISOLONE SODIUM SUCCINATE [Suspect]
     Active Substance: METHYLPREDNISOLONE SODIUM SUCCINATE
     Indication: Hyperhidrosis
  14. METHYLPREDNISOLONE SODIUM SUCCINATE [Suspect]
     Active Substance: METHYLPREDNISOLONE SODIUM SUCCINATE
     Indication: Palpitations
  15. METHYLPREDNISOLONE SODIUM SUCCINATE [Suspect]
     Active Substance: METHYLPREDNISOLONE SODIUM SUCCINATE
     Indication: Blood pressure increased
  16. PROMETHAZINE HYDROCHLORIDE [Suspect]
     Active Substance: PROMETHAZINE HYDROCHLORIDE
     Indication: Chest discomfort
     Dosage: 25 MILLIGRAM (MG)
     Route: 030
     Dates: start: 20240107
  17. PROMETHAZINE HYDROCHLORIDE [Suspect]
     Active Substance: PROMETHAZINE HYDROCHLORIDE
     Indication: Hyperhidrosis
  18. PROMETHAZINE HYDROCHLORIDE [Suspect]
     Active Substance: PROMETHAZINE HYDROCHLORIDE
     Indication: Palpitations
  19. PROMETHAZINE HYDROCHLORIDE [Suspect]
     Active Substance: PROMETHAZINE HYDROCHLORIDE
     Indication: Blood pressure increased
  20. NIFEDIPINE [Suspect]
     Active Substance: NIFEDIPINE
     Indication: Chest discomfort
     Dosage: 10 MILLIGRAM (MG)
     Route: 060
     Dates: start: 20240107
  21. NIFEDIPINE [Suspect]
     Active Substance: NIFEDIPINE
     Indication: Hyperhidrosis
  22. NIFEDIPINE [Suspect]
     Active Substance: NIFEDIPINE
     Indication: Palpitations
  23. NIFEDIPINE [Suspect]
     Active Substance: NIFEDIPINE
     Indication: Blood pressure increased

REACTIONS (6)
  - Chest discomfort [Recovered/Resolved]
  - Hyperhidrosis [Unknown]
  - Palpitations [Recovering/Resolving]
  - Blood pressure increased [Recovering/Resolving]
  - Gastric dilatation [Recovering/Resolving]
  - Discomfort [Unknown]

NARRATIVE: CASE EVENT DATE: 20240107
